FAERS Safety Report 8782523 (Version 1)
Quarter: 2012Q4

REPORT INFORMATION
  Report Type: 
  Country: US (occurrence: US)
  Receive Date: 20120913
  Receipt Date: 20120913
  Transmission Date: 20130627
  Serious: No
  Sender: FDA-Public Use
  Company Number: US-VERTEX PHARMACEUTICAL INC.-2012-019828

PATIENT
  Age: 56 None
  Sex: Male
  Weight: 114.74 kg

DRUGS (10)
  1. INCIVEK [Suspect]
     Indication: HEPATITIS C
     Dosage: 750 mg, tid
     Route: 048
     Dates: start: 20120518, end: 20120810
  2. PEGASYS [Suspect]
     Indication: HEPATITIS C
     Dosage: 180 ?g, UNK
     Route: 058
     Dates: start: 20120518, end: 20120809
  3. PEGASYS [Suspect]
     Dosage: 90 ?g, UNK
     Route: 058
     Dates: start: 20120810
  4. RIBAVIRIN [Suspect]
     Indication: HEPATITIS C
     Dosage: 600 mg, bid
     Route: 048
     Dates: start: 20120518
  5. NORCO [Concomitant]
     Route: 048
  6. AMBIEN [Concomitant]
     Dosage: 10 mg, prn
     Route: 048
  7. VENTOLIN                           /00139501/ [Concomitant]
     Indication: ASTHMA
     Dosage: UNK, prn
  8. VENTOLIN                           /00139501/ [Concomitant]
     Indication: CHRONIC OBSTRUCTIVE PULMONARY DISEASE
  9. ADVAIR HFA [Concomitant]
     Indication: ASTHMA
  10. ADVAIR HFA [Concomitant]
     Indication: CHRONIC OBSTRUCTIVE PULMONARY DISEASE

REACTIONS (8)
  - Abnormal behaviour [Not Recovered/Not Resolved]
  - Influenza like illness [Not Recovered/Not Resolved]
  - Headache [Not Recovered/Not Resolved]
  - Blood pressure increased [Not Recovered/Not Resolved]
  - Back pain [Not Recovered/Not Resolved]
  - Feeling cold [Unknown]
  - Insomnia [Not Recovered/Not Resolved]
  - Pallor [Not Recovered/Not Resolved]
